FAERS Safety Report 17391875 (Version 2)
Quarter: 2020Q1

REPORT INFORMATION
  Report Type: Spontaneous
  Country: US (occurrence: US)
  Receive Date: 20200207
  Receipt Date: 20200331
  Transmission Date: 20200409
  Serious: Yes (Other)
  Sender: FDA-Public Use
  Company Number: NVSC2020US031514

PATIENT
  Age: 6 Year
  Sex: Male

DRUGS (1)
  1. TISAGENLECLEUCEL. [Suspect]
     Active Substance: TISAGENLECLEUCEL
     Indication: ACUTE LYMPHOCYTIC LEUKAEMIA REFRACTORY
     Dosage: UNK(SUSPENSION FOR INJECTION )
     Route: 041

REACTIONS (4)
  - Hypotension [Unknown]
  - Pyrexia [Unknown]
  - Disseminated intravascular coagulation [Unknown]
  - Cytokine release syndrome [Unknown]
